FAERS Safety Report 18037972 (Version 2)
Quarter: 2020Q3

REPORT INFORMATION
  Report Type: Report from Study
  Country: FR (occurrence: FR)
  Receive Date: 20200717
  Receipt Date: 20200722
  Transmission Date: 20201103
  Serious: Yes (Hospitalization)
  Sender: FDA-Public Use
  Company Number: FR-JNJFOC-20200711200

PATIENT
  Sex: Female

DRUGS (13)
  1. STELARA [Suspect]
     Active Substance: USTEKINUMAB
     Indication: PSORIASIS
     Route: 058
     Dates: start: 20151204, end: 20160311
  2. TOBREX [Concomitant]
     Active Substance: TOBRAMYCIN
     Route: 065
     Dates: start: 20150619, end: 20180618
  3. CARTREX [Concomitant]
     Active Substance: ACECLOFENAC
     Route: 065
     Dates: start: 20150619, end: 20180618
  4. FONX [Concomitant]
     Active Substance: OXICONAZOLE NITRATE
     Route: 065
     Dates: start: 20150416, end: 20180618
  5. IBUPROFEN. [Concomitant]
     Active Substance: IBUPROFEN
     Route: 065
     Dates: start: 20150619, end: 20200120
  6. CLARELUX [Concomitant]
     Active Substance: CLOBETASOL PROPIONATE
     Route: 065
     Dates: start: 20151016, end: 20200706
  7. DIPROLINE [Concomitant]
     Route: 065
     Dates: start: 20150828, end: 20200120
  8. VALDOXAN [Concomitant]
     Active Substance: AGOMELATINE
     Route: 065
     Dates: start: 20150619, end: 20180618
  9. FUNGIZONE [Concomitant]
     Active Substance: AMPHOTERICIN B
     Route: 065
     Dates: start: 20170410, end: 20180618
  10. CRESTOR [Concomitant]
     Active Substance: ROSUVASTATIN CALCIUM
     Route: 065
     Dates: start: 20150619, end: 20180618
  11. AQUAREST [Concomitant]
     Route: 065
     Dates: start: 20150619, end: 20180618
  12. AERIUS                             /01009701/ [Concomitant]
     Active Substance: EBASTINE
     Route: 065
     Dates: start: 20150416, end: 20180618
  13. VOLTAREN [Concomitant]
     Active Substance: DICLOFENAC SODIUM
     Route: 065
     Dates: start: 20150619, end: 20200120

REACTIONS (3)
  - Off label use [Unknown]
  - Breast cancer [Not Recovered/Not Resolved]
  - Product use issue [Unknown]

NARRATIVE: CASE EVENT DATE: 202007
